FAERS Safety Report 8869684 (Version 1)
Quarter: 2012Q4

REPORT INFORMATION
  Report Type: Report from Study
  Country: CA (occurrence: CA)
  Receive Date: 20121028
  Receipt Date: 20121028
  Transmission Date: 20130627
  Serious: Yes (Other)
  Sender: FDA-Public Use
  Company Number: CA-JNJFOC-20121009526

PATIENT
  Age: 44 Year
  Sex: Female
  Weight: 70 kg

DRUGS (7)
  1. REMICADE [Suspect]
     Indication: CROHN^S DISEASE
     Route: 042
  2. VIT D [Concomitant]
     Route: 065
  3. MAGNESIUM [Concomitant]
     Indication: HEADACHE
     Route: 065
  4. ALL OTHER THERAPEUTICS [Concomitant]
     Route: 065
  5. LOSEC [Concomitant]
     Route: 065
  6. TOPIRAMATE [Concomitant]
     Route: 065
  7. TYLENOL4 [Concomitant]
     Route: 065

REACTIONS (3)
  - Mastectomy [Unknown]
  - Adverse event [Unknown]
  - Biopsy breast [Unknown]
